FAERS Safety Report 7158513-8 (Version None)
Quarter: 2010Q4

REPORT INFORMATION
  Report Type: 
  Country: None (occurrence: None)
  Receive Date: 20101214
  Receipt Date: 20100511
  Transmission Date: 20110411
  Serious: No
  Sender: FDA-Public Use
  Company Number: US-ASTRAZENECA-2010SE21517

PATIENT
  Age: 73 Year
  Sex: Female

DRUGS (5)
  1. CRESTOR [Suspect]
     Indication: BLOOD CHOLESTEROL INCREASED
     Route: 048
     Dates: start: 20100301
  2. PREMARIN [Concomitant]
  3. DIOVAN HCT [Concomitant]
  4. CELEBREX [Concomitant]
  5. PROTONIX [Concomitant]

REACTIONS (1)
  - NAIL DISORDER [None]
